FAERS Safety Report 15322830 (Version 1)
Quarter: 2018Q4

REPORT INFORMATION
  Report Type: Other
  Country: NL (occurrence: NL)
  Receive Date: 20180827
  Receipt Date: 20180827
  Transmission Date: 20190204
  Serious: Yes (Other)
  Sender: FDA-Public Use
  Company Number: NL-IPCA LABORATORIES LIMITED-IPC-2018-NL-001751

PATIENT

DRUGS (7)
  1. ALPRAZOLAM TABLET, 0.5 MG [Concomitant]
     Indication: PRODUCT USED FOR UNKNOWN INDICATION
     Dosage: 1 DF, BID
     Route: 048
     Dates: start: 2003
  2. GAVISCON (ALGINIC ACID/SODIUM HYDROGEN CARBONATE) BEVERAGES [Concomitant]
     Indication: PRODUCT USED FOR UNKNOWN INDICATION
     Dosage: 2 MAAL DAAGS
     Route: 048
     Dates: start: 2008
  3. LOSARTAN AND HYDROCHLOROTHIAZIDE [Suspect]
     Active Substance: HYDROCHLOROTHIAZIDE\LOSARTAN POTASSIUM
     Indication: HYPERTENSION
     Dosage: 1 DF, QD
     Route: 050
     Dates: start: 2006
  4. ATORVASTATIN TEVA FILM COATED TABLET [Suspect]
     Active Substance: ATORVASTATIN
     Indication: PROPHYLAXIS
     Dosage: 40 MG, BID
     Route: 048
     Dates: start: 200610
  5. VENTOLIN (SALBUTAMOL) INHALATION POWDER [Concomitant]
     Indication: PRODUCT USED FOR UNKNOWN INDICATION
     Dosage: 200 ?G, UNK
     Route: 048
     Dates: start: 2010
  6. CARBASALATE CALCIUM SACHET [Suspect]
     Active Substance: CARBASPIRIN CALCIUM
     Indication: PROPHYLAXIS
     Dosage: 100 MG, QD
     Route: 050
     Dates: start: 2006
  7. XYLOMETAZOLINE HTP (XYLOMETAZOLINE) [Concomitant]
     Active Substance: XYLOMETAZOLINE
     Indication: PRODUCT USED FOR UNKNOWN INDICATION
     Dosage: 1 DF, BID
     Route: 045
     Dates: start: 1988

REACTIONS (16)
  - Depressed mood [Not Recovered/Not Resolved]
  - Agitation [Not Recovered/Not Resolved]
  - Musculoskeletal pain [Not Recovered/Not Resolved]
  - Abdominal pain [Not Recovered/Not Resolved]
  - Listless [Not Recovered/Not Resolved]
  - Loss of libido [Not Recovered/Not Resolved]
  - Constipation [Not Recovered/Not Resolved]
  - Gastrooesophageal reflux disease [Not Recovered/Not Resolved]
  - Fatigue [Not Recovered/Not Resolved]
  - Nervousness [Not Recovered/Not Resolved]
  - Suicidal ideation [Not Recovered/Not Resolved]
  - Anxiety disorder [Not Recovered/Not Resolved]
  - Dyspnoea [Not Recovered/Not Resolved]
  - Neck pain [Not Recovered/Not Resolved]
  - Pain [Not Recovered/Not Resolved]
  - Pain in extremity [Not Recovered/Not Resolved]

NARRATIVE: CASE EVENT DATE: 2010
